FAERS Safety Report 10015213 (Version 2)
Quarter: 2014Q1

REPORT INFORMATION
  Report Type: Spontaneous
  Country: US (occurrence: US)
  Receive Date: 20140317
  Receipt Date: 20140317
  Transmission Date: 20141002
  Serious: No
  Sender: FDA-Public Use
  Company Number: US-PFIZER INC-2014068611

PATIENT
  Age: 31 Year
  Sex: Female

DRUGS (3)
  1. LYRICA [Suspect]
     Indication: BIPOLAR DISORDER
     Dosage: 1000 MG, DAILY
     Dates: start: 2013
  2. LYRICA [Suspect]
     Indication: ANXIETY
  3. DEPAKOTE [Concomitant]
     Dosage: UNK

REACTIONS (3)
  - Intentional drug misuse [Unknown]
  - Local swelling [Unknown]
  - Increased appetite [Unknown]
